FAERS Safety Report 9929425 (Version 3)
Quarter: 2014Q2

REPORT INFORMATION
  Report Type: Spontaneous
  Country: ES (occurrence: ES)
  Receive Date: 20140227
  Receipt Date: 20140509
  Transmission Date: 20141212
  Serious: Yes (Congenital Anomaly, Other)
  Sender: FDA-Public Use
  Company Number: ES-JNJFOC-20140213629

PATIENT
  Sex: 0

DRUGS (2)
  1. XEPLION [Suspect]
     Indication: BIPOLAR DISORDER
     Route: 064
  2. XEPLION [Suspect]
     Indication: BIPOLAR DISORDER
     Route: 064

REACTIONS (2)
  - Foetal exposure during pregnancy [Recovered/Resolved]
  - Male genital examination abnormal [Unknown]
